FAERS Safety Report 18807123 (Version 1)
Quarter: 2021Q1

REPORT INFORMATION
  Report Type: Spontaneous
  Country: US (occurrence: US)
  Receive Date: 20210128
  Receipt Date: 20210128
  Transmission Date: 20210419
  Serious: Yes (Death)
  Sender: FDA-Public Use
  Company Number: None

PATIENT
  Age: 56 Year
  Sex: Female

DRUGS (2)
  1. MYCOPHENOLATE [Suspect]
     Active Substance: MYCOPHENOLIC ACID
  2. TACROLIMUS. [Suspect]
     Active Substance: TACROLIMUS

REACTIONS (1)
  - Death [None]

NARRATIVE: CASE EVENT DATE: 20210123
